FAERS Safety Report 8819327 (Version 1)
Quarter: 2012Q4

REPORT INFORMATION
  Report Type: Spontaneous
  Country: GB (occurrence: None)
  Receive Date: 20121003
  Receipt Date: 20121003
  Transmission Date: 20130627
  Serious: Yes (Death, Life-Threatening, Other)
  Sender: FDA-Public Use
  Company Number: FK201202811

PATIENT
  Sex: Male
  Weight: 39 kg

DRUGS (22)
  1. BUPIVACAINE [Suspect]
     Indication: POSTOPERATIVE ANALGESIA
     Dosage: wih Epinephrine 1:200,000, other
  2. BUPIVACAINE [Suspect]
     Indication: POSTOPERATIVE ANALGESIA
  3. BUPIVACAINE [Suspect]
     Indication: POSTOPERATIVE ANALGESIA
  4. BUPIVACAINE [Suspect]
     Indication: POSTOPERATIVE ANALGESIA
     Dosage: 20 ml, (20 mg, 0.48 mg/kg), other
  5. BUPIVACAINE [Suspect]
     Indication: POSTOPERATIVE ANALGESIA
  6. BUPIVACAINE [Suspect]
     Indication: POSTOPERATIVE ANALGESIA
  7. BUPIVACAINE [Suspect]
     Indication: POSTOPERATIVE ANALGESIA
     Dosage: 16 ml/h, 16mg/h, 0.38mg/kg/h, Other
  8. BUPIVACAINE [Suspect]
     Indication: POSTOPERATIVE ANALGESIA
  9. BUPIVACAINE [Suspect]
     Indication: POSTOPERATIVE ANALGESIA
  10. BUPIVACAINE [Suspect]
     Indication: POSTOPERATIVE ANALGESIA
     Dosage: 20 ml, 20mg, 0.48mg/kg, other
  11. BUPIVACAINE [Suspect]
     Indication: POSTOPERATIVE ANALGESIA
  12. BUPIVACAINE [Suspect]
     Indication: POSTOPERATIVE ANALGESIA
  13. BUPIVACAINE [Suspect]
     Indication: POSTOPERATIVE ANALGESIA
     Dosage: 20ml, 20 mg, 0.48mg/kg, other
  14. BUPIVACAINE [Suspect]
     Indication: POSTOPERATIVE ANALGESIA
  15. BUPIVACAINE [Suspect]
     Indication: POSTOPERATIVE ANALGESIA
  16. BUPIVACAINE [Suspect]
     Indication: POSTOPERATIVE ANALGESIA
     Dosage: 20 ml, 20mg, 0.48m/kg, other
  17. BUPIVACAINE [Suspect]
     Indication: POSTOPERATIVE ANALGESIA
  18. BUPIVACAINE [Suspect]
     Indication: POSTOPERATIVE ANALGESIA
  19. BUPIVACAINE [Suspect]
     Indication: POSTOPERATIVE ANALGESIA
     Dosage: 20 ml, 20 mg, 0.48 mg/kg, other
  20. NORMAL SALINE (SODIUM CHLORIDE) [Concomitant]
  21. PARACETAMOL (PAREACETAMOL) [Concomitant]
  22. MORPHINE (MORPHINE) [Concomitant]

REACTIONS (9)
  - Respiratory failure [None]
  - Toxicity to various agents [None]
  - Agitation [None]
  - Delirium [None]
  - Alcohol withdrawal syndrome [None]
  - Grand mal convulsion [None]
  - Vomiting [None]
  - Acute respiratory distress syndrome [None]
  - Infusion related reaction [None]
